FAERS Safety Report 19808114 (Version 1)
Quarter: 2021Q3

REPORT INFORMATION
  Report Type: Spontaneous
  Country: SE (occurrence: SE)
  Receive Date: 20210909
  Receipt Date: 20210909
  Transmission Date: 20211014
  Serious: Yes (Disabling)
  Sender: FDA-Public Use
  Company Number: SE-TEVA-2021-SE-1950165

PATIENT
  Age: 71 Year
  Sex: Female
  Weight: 53 kg

DRUGS (2)
  1. KETOCONAZOL ACTAVIS 20 MG/G SCHAMPO [Suspect]
     Active Substance: KETOCONAZOLE
     Indication: ALOPECIA
  2. KETOCONAZOL ACTAVIS 20 MG/G SCHAMPO [Suspect]
     Active Substance: KETOCONAZOLE
     Indication: PRURITUS
     Dosage: FIRST DOSE
     Route: 003
     Dates: start: 20210818, end: 20210818

REACTIONS (4)
  - Eye irritation [Not Recovered/Not Resolved]
  - Vision blurred [Recovered/Resolved with Sequelae]
  - Trichorrhexis [Not Recovered/Not Resolved]
  - Dry eye [Recovered/Resolved with Sequelae]

NARRATIVE: CASE EVENT DATE: 20210818
